FAERS Safety Report 11647691 (Version 1)
Quarter: 2015Q4

REPORT INFORMATION
  Report Type: Spontaneous
  Country: US (occurrence: None)
  Receive Date: 20151020
  Receipt Date: 20151020
  Transmission Date: 20160304
  Serious: Yes (Hospitalization)
  Sender: FDA-Public Use
  Company Number: None

PATIENT
  Age: 62 Year
  Sex: Female
  Weight: 86.18 kg

DRUGS (1)
  1. CELEXA [Suspect]
     Active Substance: CITALOPRAM HYDROBROMIDE
     Indication: DEPRESSION
     Route: 048
     Dates: start: 20140201, end: 20140214

REACTIONS (11)
  - Dysgraphia [None]
  - Incorrect dose administered [None]
  - Insomnia [None]
  - Feeling jittery [None]
  - Stupor [None]
  - Loss of consciousness [None]
  - Confusional state [None]
  - Nerve injury [None]
  - Feeling abnormal [None]
  - Blood pressure systolic increased [None]
  - Product substitution issue [None]

NARRATIVE: CASE EVENT DATE: 20140214
